FAERS Safety Report 5847922-2 (Version None)
Quarter: 2008Q3

REPORT INFORMATION
  Report Type: 
  Country: None (occurrence: None)
  Receive Date: 20080818
  Receipt Date: 20080804
  Transmission Date: 20090109
  Serious: Yes (Other)
  Sender: FDA-Public Use
  Company Number: AT-ROCHE-579790

PATIENT
  Age: 69 Year
  Sex: Female
  Weight: 64 kg

DRUGS (6)
  1. BONIVA [Suspect]
     Indication: OSTEOPOROSIS
     Dosage: STRENGTH: 3MG/ 3 ML, INDICATION: OSTEOPOROSIS, FRACTURE OF THE VERTEBRAL BODY
     Route: 042
     Dates: start: 20080711, end: 20080711
  2. CO-ENAC [Concomitant]
     Dosage: DOSE:1 X 1
     Route: 048
  3. EBETREXAT [Concomitant]
     Dosage: DOSE: 1 X/ WEEK
     Route: 048
  4. FOLSAN [Concomitant]
     Dosage: DOSE: 1X 1
     Route: 048
  5. PANTOPRAZOLE SODIUM [Concomitant]
     Dosage: DOSE: 1X 1
     Route: 048
  6. TRAMABENE [Concomitant]
     Route: 048

REACTIONS (5)
  - CARDIOVASCULAR DISORDER [None]
  - HYPERHIDROSIS [None]
  - NAUSEA [None]
  - SALIVARY HYPERSECRETION [None]
  - VOMITING [None]
